FAERS Safety Report 9447685 (Version 3)
Quarter: 2016Q2

REPORT INFORMATION
  Report Type: Report from Study
  Country: US (occurrence: US)
  Receive Date: 20130808
  Receipt Date: 20160414
  Transmission Date: 20160815
  Serious: Yes (Hospitalization, Other)
  Sender: FDA-Public Use
  Company Number: US-SHIRE-ALL1-2012-05006

PATIENT
  Age: 5 Year
  Sex: Male

DRUGS (3)
  1. PARACETAMOL [Concomitant]
     Active Substance: ACETAMINOPHEN
     Indication: PREMEDICATION
     Dosage: 240 MG, 1X/WEEK
     Route: 048
     Dates: start: 20091203
  2. LORATADINE. [Concomitant]
     Active Substance: LORATADINE
     Indication: PREMEDICATION
     Dosage: 5 MG, 1X/WEEK
     Route: 048
     Dates: start: 20091203
  3. IDURSULFASE [Suspect]
     Active Substance: IDURSULFASE
     Indication: MUCOPOLYSACCHARIDOSIS II
     Dosage: 0.5 MG/KG, 1X/WEEK
     Route: 041
     Dates: start: 20091014

REACTIONS (4)
  - Upper airway obstruction [Recovered/Resolved with Sequelae]
  - Viral upper respiratory tract infection [Recovered/Resolved]
  - Increased upper airway secretion [Unknown]
  - Laryngeal stenosis [Recovered/Resolved with Sequelae]

NARRATIVE: CASE EVENT DATE: 20100331
